FAERS Safety Report 8532044-2 (Version None)
Quarter: 2012Q3

REPORT INFORMATION
  Report Type: 
  Country: None (occurrence: None)
  Receive Date: 20120723
  Receipt Date: 20120718
  Transmission Date: 20120928
  Serious: Yes (Hospitalization)
  Sender: FDA-Public Use
  Company Number: US-GLAXOSMITHKLINE-A0927980A

PATIENT
  Age: 56 Year
  Sex: Female
  Weight: 67.1 kg

DRUGS (8)
  1. DIGOXIN [Concomitant]
  2. SPIRIVA [Concomitant]
  3. FLOLAN [Suspect]
     Indication: PULMONARY ARTERIAL HYPERTENSION
     Dosage: 61.6NGKM CONTINUOUS
     Route: 065
     Dates: start: 20070524
  4. ADVAIR DISKUS 100/50 [Concomitant]
  5. OXYGEN [Concomitant]
  6. LYRICA [Concomitant]
  7. IMODIUM A-D [Concomitant]
  8. WARFARIN SODIUM [Concomitant]

REACTIONS (5)
  - CELLULITIS ORBITAL [None]
  - CELLULITIS [None]
  - FLUID RETENTION [None]
  - RENAL FAILURE ACUTE [None]
  - BLOOD ALKALINE PHOSPHATASE INCREASED [None]
